FAERS Safety Report 7822288-7 (Version None)
Quarter: 2011Q4

REPORT INFORMATION
  Report Type: 
  Country: None (occurrence: None)
  Receive Date: 20111018
  Receipt Date: 20101216
  Transmission Date: 20120403
  Serious: No
  Sender: FDA-Public Use
  Company Number: US-ASTRAZENECA-2010SE44243

PATIENT
  Sex: Male

DRUGS (3)
  1. SYMBICORT [Suspect]
     Indication: ASTHMA
     Route: 055
     Dates: start: 20080101
  2. SYMBICORT [Suspect]
     Dosage: 160/4.5 UG, ONE PUFF, TWO TIMES A DAY.
     Route: 055
  3. SYMBICORT [Suspect]
     Dosage: 160/4 UG, 10.2 GM, TWO PUFFS TWO TIMES A DAY.
     Route: 055
     Dates: start: 20100723

REACTIONS (1)
  - FEELING ABNORMAL [None]
